FAERS Safety Report 25768826 (Version 2)
Quarter: 2025Q3

REPORT INFORMATION
  Report Type: Report from Study
  Country: US (occurrence: US)
  Receive Date: 20250905
  Receipt Date: 20250908
  Transmission Date: 20251021
  Serious: Yes (Death)
  Sender: DAIICHI
  Company Number: US-DSJP-DSU-2023-145210

PATIENT
  Sex: Female

DRUGS (7)
  1. ENHERTU [Suspect]
     Active Substance: FAM-TRASTUZUMAB DERUXTECAN-NXKI
     Indication: Breast cancer female
     Dosage: UNK UNK, ONCE EVERY 3 WK
     Route: 042
     Dates: start: 20230531, end: 20230531
  2. ENHERTU [Suspect]
     Active Substance: FAM-TRASTUZUMAB DERUXTECAN-NXKI
     Dosage: 332 MG, ONCE EVERY 3 WK
     Route: 042
  3. ENHERTU [Suspect]
     Active Substance: FAM-TRASTUZUMAB DERUXTECAN-NXKI
     Dosage: 167 MG, ONCE EVERY 3 WK
     Route: 042
     Dates: start: 20230605, end: 20230605
  4. ENHERTU [Suspect]
     Active Substance: FAM-TRASTUZUMAB DERUXTECAN-NXKI
     Dosage: 293 MG, ONCE EVERY 3 WK
     Route: 042
     Dates: start: 20240104, end: 20240104
  5. ENHERTU [Suspect]
     Active Substance: FAM-TRASTUZUMAB DERUXTECAN-NXKI
     Dosage: 180 MG, ONCE EVERY 3 WK
     Route: 042
     Dates: start: 20240711, end: 20240711
  6. ENHERTU [Suspect]
     Active Substance: FAM-TRASTUZUMAB DERUXTECAN-NXKI
     Dosage: 180 MG, ONCE EVERY 3 WK
     Route: 042
     Dates: start: 20241226, end: 20241226
  7. ENHERTU [Suspect]
     Active Substance: FAM-TRASTUZUMAB DERUXTECAN-NXKI
     Dosage: 167 MG, ONCE EVERY 3 WK
     Route: 042
     Dates: start: 20250108, end: 20250108

REACTIONS (2)
  - Death [Fatal]
  - Weight decreased [Unknown]

NARRATIVE: CASE EVENT DATE: 20230101
